FAERS Safety Report 9692963 (Version 2)
Quarter: 2013Q4

REPORT INFORMATION
  Report Type: Report from Study
  Country: US (occurrence: US)
  Receive Date: 20131118
  Receipt Date: 20131127
  Transmission Date: 20140711
  Serious: Yes (Hospitalization)
  Sender: FDA-Public Use
  Company Number: PHEH2013US024021

PATIENT
  Age: 24 Year
  Sex: Female

DRUGS (1)
  1. TOBI [Suspect]
     Dosage: 300 MG, BID

REACTIONS (3)
  - Pneumonia [Recovering/Resolving]
  - Convulsion [Recovering/Resolving]
  - Respiratory disorder [Unknown]
